FAERS Safety Report 13194213 (Version 2)
Quarter: 2017Q1

REPORT INFORMATION
  Report Type: Spontaneous
  Country: US (occurrence: US)
  Receive Date: 20170207
  Receipt Date: 20170213
  Transmission Date: 20170428
  Serious: Yes (Other)
  Sender: FDA-Public Use
  Company Number: US-SAOL THERAPEUTICS-2017SAO00218

PATIENT
  Sex: Male

DRUGS (3)
  1. LIORESAL [Suspect]
     Active Substance: BACLOFEN
     Dosage: 270 ?G, \DAY
  2. LIORESAL [Suspect]
     Active Substance: BACLOFEN
     Indication: MUSCLE SPASTICITY
     Dosage: 322 ?G, \DAY
  3. LIORESAL [Suspect]
     Active Substance: BACLOFEN
     Dosage: 332 ?G, \DAY

REACTIONS (5)
  - Muscle spasticity [Recovered/Resolved]
  - Opisthotonus [Recovered/Resolved]
  - Pulse abnormal [Recovered/Resolved]
  - Complication associated with device [Recovered/Resolved]
  - Dystonia [Recovered/Resolved]
